FAERS Safety Report 10370467 (Version 1)
Quarter: 2014Q1

REPORT INFORMATION
  Report Type: Spontaneous
  Country: US (occurrence: None)
  Receive Date: 20140306
  Receipt Date: 20140306
  Transmission Date: 20141002
  Serious: Yes (Hospitalization, Other)
  Sender: FDA-Public Use
  Company Number: 163-21880-13090197

PATIENT
  Age: 81 Year
  Sex: Male

DRUGS (18)
  1. REVLIMID (LENALIDOMIDE) (5 MILLIGRAM, CAPSULES) [Suspect]
     Indication: PLASMA CELL MYELOMA
     Route: 048
     Dates: start: 20130304, end: 20131024
  2. DEXAMETHASONE (UNKNOWN) [Concomitant]
  3. ALLOPURINOL (UNKNOWN) [Concomitant]
  4. NORVASC (AMLODIPINE BESILATE) (UNKNOWN) [Concomitant]
  5. ASPIRIN (ACETYLSALICYLIC ACID) (UNKNOWN) (ACETYLSALICYLIC ACID) [Concomitant]
  6. PAMIDRONATE (PAMIDRONATE DISODIUM) (UNKNOWN) [Concomitant]
  7. AVODART (DUTASTERIDE) (UNKNOWN) [Concomitant]
  8. BYSTOLIC (NEBIVOLOL HYDROCHLORIDE) (UNKNOWN) [Concomitant]
  9. LASIX (FUROSEMIDE) (UNKNOWN) [Concomitant]
  10. LEVOTHYROXINE (UNKNOWN) [Concomitant]
  11. LISINOPRIL (UNKNOWN) [Concomitant]
  12. OXYCONTIN (OXYCODONE HYDROCHLORIDE) (UNKNOWN) [Concomitant]
  13. OXYCODONE [Concomitant]
  14. MELATONIN (UNKNOWN) [Concomitant]
  15. VITAMIN B12 (CYANOCOBALAMIN) (UNKNOWN) [Concomitant]
  16. SYNTHROID (LEVOTHYROXINE SODIUM) (UNKNOWN) [Concomitant]
  17. SENNA (UNKNOWN) [Concomitant]
  18. COLACE (DOCUSATE SODIUM) (UNKNOWN) [Concomitant]

REACTIONS (3)
  - Pancytopenia [None]
  - Asthenia [None]
  - Peritonitis [None]
